FAERS Safety Report 5119599-5 (Version None)
Quarter: 2006Q4

REPORT INFORMATION
  Report Type: 
  Country: None (occurrence: None)
  Receive Date: 20061003
  Receipt Date: 20060614
  Transmission Date: 20070319
  Serious: Yes (Other)
  Sender: FDA-Public Use
  Company Number: US-GLAXOSMITHKLINE-A0609000A

PATIENT
  Age: 71 Year
  Sex: Female
  Weight: 92.3 kg

DRUGS (12)
  1. REQUIP [Suspect]
     Indication: RESTLESS LEGS SYNDROME
     Dosage: 1MG UNKNOWN
     Route: 065
  2. SYNTHROID [Concomitant]
  3. CRESTOR [Concomitant]
  4. ZETIA [Concomitant]
  5. NEURONTIN [Concomitant]
  6. ACTOS [Concomitant]
  7. VESICARE [Concomitant]
  8. ALTACE [Concomitant]
  9. FLONASE [Concomitant]
  10. ZOLOFT [Concomitant]
  11. LASIX [Concomitant]
  12. COZAAR [Concomitant]

REACTIONS (2)
  - ALANINE AMINOTRANSFERASE INCREASED [None]
  - ASPARTATE AMINOTRANSFERASE INCREASED [None]
